FAERS Safety Report 20484118 (Version 5)
Quarter: 2022Q1

REPORT INFORMATION
  Report Type: Report from Study
  Country: ES (occurrence: ES)
  Receive Date: 20220217
  Receipt Date: 20220331
  Transmission Date: 20220423
  Serious: Yes (Hospitalization, Other)
  Sender: FDA-Public Use
  Company Number: ES-ABBVIE-21K-144-4218758-00

PATIENT
  Age: 77 Year
  Sex: Male
  Weight: 62 kg

DRUGS (4)
  1. CARBIDOPA\LEVODOPA [Suspect]
     Active Substance: CARBIDOPA\LEVODOPA
     Indication: Parkinson^s disease
     Dosage: CONTINUOUS DOSE 1.8ML / H
     Route: 050
     Dates: start: 20210708, end: 20211221
  2. CARBIDOPA\LEVODOPA [Suspect]
     Active Substance: CARBIDOPA\LEVODOPA
     Dosage: CONTINUOUS DOSE 1.9ML / H
     Route: 050
     Dates: start: 20211221, end: 20220110
  3. CARBIDOPA\LEVODOPA [Suspect]
     Active Substance: CARBIDOPA\LEVODOPA
     Dosage: DOSE CHANGED, CONTINUOUS DOSE 2.1 ML/H
     Route: 050
     Dates: start: 20220110, end: 202201
  4. CARBIDOPA\LEVODOPA [Suspect]
     Active Substance: CARBIDOPA\LEVODOPA
     Dosage: MODIFIED THE CD TO 1.9 ML/H ED 1.0 ML; ED BLOCK 1 HR, PURGING 3 ML, MD 0.0
     Route: 050
     Dates: start: 202201

REACTIONS (29)
  - COVID-19 [Recovered/Resolved]
  - Nervousness [Not Recovered/Not Resolved]
  - SARS-CoV-2 test positive [Recovered/Resolved]
  - Unresponsive to stimuli [Not Recovered/Not Resolved]
  - Muscle rigidity [Not Recovered/Not Resolved]
  - Pneumonia [Recovered/Resolved]
  - Mobility decreased [Not Recovered/Not Resolved]
  - Mood altered [Not Recovered/Not Resolved]
  - Anger [Not Recovered/Not Resolved]
  - Sleep talking [Recovered/Resolved]
  - Drug hypersensitivity [Not Recovered/Not Resolved]
  - Feeling abnormal [Not Recovered/Not Resolved]
  - Nervousness [Not Recovered/Not Resolved]
  - Mobility decreased [Unknown]
  - Gait inability [Unknown]
  - Dysstasia [Unknown]
  - Pulmonary mass [Not Recovered/Not Resolved]
  - On and off phenomenon [Not Recovered/Not Resolved]
  - Hallucination [Not Recovered/Not Resolved]
  - Drug ineffective [Unknown]
  - Device issue [Unknown]
  - Herpes zoster [Recovered/Resolved]
  - Aphasia [Not Recovered/Not Resolved]
  - Breath sounds abnormal [Recovered/Resolved]
  - Gait inability [Not Recovered/Not Resolved]
  - Freezing phenomenon [Not Recovered/Not Resolved]
  - Device material issue [Unknown]
  - Wheelchair user [Unknown]
  - Parkinson^s disease [Unknown]

NARRATIVE: CASE EVENT DATE: 20211101
